FAERS Safety Report 18886105 (Version 2)
Quarter: 2021Q2

REPORT INFORMATION
  Report Type: Spontaneous
  Country: GB (occurrence: GB)
  Receive Date: 20210212
  Receipt Date: 20210520
  Transmission Date: 20210717
  Serious: Yes (Other)
  Sender: FDA-Public Use
  Company Number: GB-GLAXOSMITHKLINE-GB2021GSK031978

PATIENT
  Age: 72 Year
  Sex: Female

DRUGS (8)
  1. VALACICLOVIR [Suspect]
     Active Substance: VALACYCLOVIR HYDROCHLORIDE
     Indication: GENITAL ULCERATION
     Dosage: UNK
  2. ACICLOVIR [Suspect]
     Active Substance: ACYCLOVIR
     Indication: GENITAL ULCERATION
     Dosage: UNK
  3. VALACICLOVIR [Suspect]
     Active Substance: VALACYCLOVIR HYDROCHLORIDE
     Indication: HERPES SIMPLEX
  4. CIDOFOVIR. [Suspect]
     Active Substance: CIDOFOVIR
     Indication: GENITAL ULCERATION
     Dosage: UNK
  5. ACICLOVIR [Suspect]
     Active Substance: ACYCLOVIR
     Indication: HERPES SIMPLEX
  6. CIDOFOVIR. [Suspect]
     Active Substance: CIDOFOVIR
     Indication: HERPES SIMPLEX
  7. FOSCARNET [Suspect]
     Active Substance: FOSCARNET
     Indication: GENITAL ULCERATION
     Dosage: UNK
  8. FOSCARNET [Suspect]
     Active Substance: FOSCARNET
     Indication: HERPES SIMPLEX

REACTIONS (3)
  - Multiple-drug resistance [Unknown]
  - Pathogen resistance [Unknown]
  - Viral mutation identified [Unknown]
